FAERS Safety Report 14784408 (Version 1)
Quarter: 2018Q2

REPORT INFORMATION
  Report Type: Spontaneous
  Country: US (occurrence: US)
  Receive Date: 20180420
  Receipt Date: 20180420
  Transmission Date: 20180711
  Serious: Yes (Hospitalization)
  Sender: FDA-Public Use
  Company Number: US-SA-2018SA108068

PATIENT
  Age: 41 Year
  Sex: Female

DRUGS (2)
  1. CERDELGA [Suspect]
     Active Substance: ELIGLUSTAT
     Route: 048
     Dates: start: 201509
  2. AMOXICILLIN. [Suspect]
     Active Substance: AMOXICILLIN
     Indication: BRONCHITIS
     Route: 065

REACTIONS (4)
  - Vomiting [Recovering/Resolving]
  - Colitis [Recovering/Resolving]
  - Abdominal pain upper [Recovering/Resolving]
  - Bronchitis [Unknown]

NARRATIVE: CASE EVENT DATE: 20180401
